FAERS Safety Report 4366013-3 (Version None)
Quarter: 2004Q2

REPORT INFORMATION
  Report Type: 
  Country: None (occurrence: None)
  Receive Date: 20040526
  Receipt Date: 20040526
  Transmission Date: 20050107
  Serious: Yes (Life-Threatening, Hospitalization, Disabling)
  Sender: FDA-Public Use
  Company Number: None

PATIENT
  Age: 86 Year
  Sex: Male
  Weight: 85 kg

DRUGS (1)
  1. ALTEPLASE 1 MG/ML GENETECH [Suspect]
     Indication: ISCHAEMIC STROKE
     Dosage: 76.5 1 HOUR INTRAVENOUS
     Route: 042
     Dates: start: 20040428, end: 20040428

REACTIONS (3)
  - HYPERTENSIVE EMERGENCY [None]
  - MENTAL STATUS CHANGES [None]
  - SEPSIS [None]
